FAERS Safety Report 9082678 (Version 1)
Quarter: 2013Q1

REPORT INFORMATION
  Report Type: Spontaneous
  Country: US (occurrence: US)
  Receive Date: 20130218
  Receipt Date: 20130218
  Transmission Date: 20140127
  Serious: No
  Sender: FDA-Public Use
  Company Number: US-PFIZER INC-2013061405

PATIENT
  Age: 50 Year
  Sex: Female
  Weight: 74.83 kg

DRUGS (2)
  1. LYRICA [Suspect]
     Indication: NERVE COMPRESSION
     Dosage: 300 MG, 2X/DAY
     Dates: start: 2011, end: 201302
  2. LYRICA [Suspect]
     Dosage: 300 MG/DAY
     Dates: start: 201302, end: 201302

REACTIONS (4)
  - Renal pain [Recovered/Resolved]
  - Restless legs syndrome [Not Recovered/Not Resolved]
  - Feeling hot [Not Recovered/Not Resolved]
  - Feeling cold [Not Recovered/Not Resolved]
